FAERS Safety Report 23611743 (Version 1)
Quarter: 2024Q1

REPORT INFORMATION
  Report Type: Spontaneous
  Country: US (occurrence: US)
  Receive Date: 20240308
  Receipt Date: 20240308
  Transmission Date: 20240409
  Serious: Yes (Life-Threatening, Hospitalization, Other)
  Sender: FDA-Public Use
  Company Number: US-VERTEX PHARMACEUTICALS-2023-011511

PATIENT
  Sex: Male

DRUGS (8)
  1. TRIKAFTA [Suspect]
     Active Substance: ELEXACAFTOR\IVACAFTOR\TEZACAFTOR
     Indication: Cystic fibrosis
     Dosage: 2 ORANGE TABS AM + 1 BLUE TAB PM
     Route: 048
     Dates: start: 20200121
  2. TRIKAFTA [Suspect]
     Active Substance: ELEXACAFTOR\IVACAFTOR\TEZACAFTOR
     Dosage: 1 BLUE TAB IN AM AND 2 ORANGE TABS IN PM
     Route: 048
  3. ALBUTEROL [Concomitant]
     Active Substance: ALBUTEROL
     Dosage: INH
  4. VENTOL [Concomitant]
     Dosage: GEQ
  5. CREON [Concomitant]
     Active Substance: PANCRELIPASE AMYLASE\PANCRELIPASE LIPASE\PANCRELIPASE PROTEASE
     Dosage: 36000 UNIT CAP
  6. PULMOZYME [Concomitant]
     Active Substance: DORNASE ALFA
     Dosage: 2.5 MG/ 2.5 ML NEB 90=30
     Route: 055
  7. TOBI [Concomitant]
     Active Substance: TOBRAMYCIN
     Dosage: NEB 300/ 5 ML
     Route: 055
  8. VITAMIN D3 [Concomitant]
     Active Substance: CHOLECALCIFEROL
     Dosage: TAB 400 UNIT

REACTIONS (8)
  - Pneumonia necrotising [Recovering/Resolving]
  - Haemoptysis [Recovering/Resolving]
  - Infective pulmonary exacerbation of cystic fibrosis [Not Recovered/Not Resolved]
  - Weight decreased [Recovering/Resolving]
  - Insomnia [Recovering/Resolving]
  - Eating disorder [Recovered/Resolved]
  - Gastrointestinal disorder [Recovering/Resolving]
  - Abdominal distension [Recovering/Resolving]

NARRATIVE: CASE EVENT DATE: 20200101
